FAERS Safety Report 8477000-8 (Version None)
Quarter: 2012Q2

REPORT INFORMATION
  Report Type: 
  Country: None (occurrence: None)
  Receive Date: 20120629
  Receipt Date: 20120620
  Transmission Date: 20120825
  Serious: No
  Sender: FDA-Public Use
  Company Number: US-BIOGENIDEC-2012BI022123

PATIENT
  Sex: Female

DRUGS (2)
  1. AVONEX [Suspect]
     Indication: MULTIPLE SCLEROSIS
     Route: 030
     Dates: start: 20111014, end: 20120101
  2. AVONEX [Suspect]
     Route: 030
     Dates: start: 20120101

REACTIONS (2)
  - DEPRESSION [None]
  - VISUAL ACUITY REDUCED [None]
